FAERS Safety Report 5565048-2 (Version None)
Quarter: 2007Q4

REPORT INFORMATION
  Report Type: 
  Country: None (occurrence: None)
  Receive Date: 20071218
  Receipt Date: 20071212
  Transmission Date: 20080405
  Serious: Yes (Other)
  Sender: FDA-Public Use
  Company Number: US-BRISTOL-MYERS SQUIBB COMPANY-13327010

PATIENT
  Age: 77 Year
  Sex: Female

DRUGS (18)
  1. CARBOPLATIN [Suspect]
     Indication: NON-SMALL CELL LUNG CANCER
     Route: 042
     Dates: start: 20060308, end: 20060308
  2. CARBOPLATIN [Suspect]
     Route: 042
     Dates: start: 20060315
  3. CARBOPLATIN [Suspect]
     Route: 042
     Dates: start: 20060215, end: 20060215
  4. PACLITAXEL [Suspect]
     Indication: NON-SMALL CELL LUNG CANCER
     Route: 042
     Dates: start: 20060308, end: 20060308
  5. PACLITAXEL [Suspect]
     Route: 042
     Dates: start: 20060315
  6. PACLITAXEL [Suspect]
     Route: 042
     Dates: start: 20060215, end: 20060215
  7. SORAFENIB [Suspect]
     Indication: NON-SMALL CELL LUNG CANCER
     Route: 048
     Dates: start: 20060219, end: 20060305
  8. SORAFENIB [Suspect]
     Dosage: INITIAL ADMINISTRATION ON 18/FEB/2006
     Route: 048
     Dates: start: 20060315, end: 20060329
  9. PRINIVIL TABS 20 MG [Concomitant]
     Indication: HYPERTENSION
     Route: 048
  10. LEVOTHYROXINE SODIUM [Concomitant]
     Indication: HYPOTHYROIDISM
     Route: 048
  11. CIPROFLOXACIN HCL [Concomitant]
     Indication: PROPHYLAXIS
     Route: 048
     Dates: start: 20060227, end: 20060309
  12. NEURONTIN [Concomitant]
     Indication: NEUROPATHY
     Route: 048
     Dates: start: 20060222
  13. BENADRYL [Concomitant]
     Indication: PREMEDICATION
     Route: 042
     Dates: start: 20060215, end: 20060215
  14. TAGAMET [Concomitant]
     Indication: PREMEDICATION
     Route: 042
     Dates: start: 20060215, end: 20060215
  15. ALOXI [Concomitant]
     Indication: PREMEDICATION
     Dates: start: 20060215, end: 20060215
  16. DECADRON [Concomitant]
     Indication: PREMEDICATION
     Route: 042
     Dates: start: 20060215, end: 20060215
  17. NEULASTA [Concomitant]
     Indication: NEUTROPENIA
     Route: 058
     Dates: start: 20060316
  18. ARANESP [Concomitant]
     Indication: PROPHYLAXIS
     Route: 042
     Dates: start: 20060405

REACTIONS (5)
  - ALANINE AMINOTRANSFERASE INCREASED [None]
  - ASPARTATE AMINOTRANSFERASE INCREASED [None]
  - BLOOD ALKALINE PHOSPHATASE INCREASED [None]
  - DEEP VEIN THROMBOSIS [None]
  - GAMMA-GLUTAMYLTRANSFERASE INCREASED [None]
